FAERS Safety Report 10085941 (Version 1)
Quarter: 2014Q2

REPORT INFORMATION
  Report Type: Spontaneous
  Country: IN (occurrence: None)
  Receive Date: 20140416
  Receipt Date: 20140416
  Transmission Date: 20141212
  Serious: Yes (Death, Hospitalization)
  Sender: FDA-Public Use
  Company Number: IPC201404-000159

PATIENT
  Age: 26 Year
  Sex: Male

DRUGS (5)
  1. TRAMADOL (TRAMADOL) [Suspect]
  2. DICLOFENAC (DICLOFENAC) [Suspect]
  3. PHENIRAMINE [Suspect]
  4. DEXAMETHASONE (DEXAMETHASONE) [Suspect]
  5. HEPARIN (HEPARIN) [Suspect]

REACTIONS (11)
  - Hyperkalaemia [None]
  - Cardiac arrest [None]
  - Sepsis [None]
  - Metabolic acidosis [None]
  - Lactic acidosis [None]
  - Thrombocytopenia [None]
  - Coagulopathy [None]
  - Upper gastrointestinal haemorrhage [None]
  - Ventricular fibrillation [None]
  - Blister [None]
  - Tachypnoea [None]
